FAERS Safety Report 4627374-0 (Version None)
Quarter: 2005Q1

REPORT INFORMATION
  Report Type: 
  Country: None (occurrence: None)
  Receive Date: 20050330
  Receipt Date: 20050318
  Transmission Date: 20050727
  Serious: Yes (Other)
  Sender: FDA-Public Use
  Company Number: ESWYE520021MAR05

PATIENT
  Age: 52 Year

DRUGS (1)
  1. VANDRAL (VENLAFAXINE HYDROCHLORIDE, UNSPEC, 0) [Suspect]
     Dosage: ORAL
     Route: 048

REACTIONS (3)
  - DIZZINESS [None]
  - LOSS OF CONSCIOUSNESS [None]
  - PARKINSONISM [None]
